FAERS Safety Report 25223156 (Version 1)
Quarter: 2025Q2

REPORT INFORMATION
  Report Type: Spontaneous
  Country: US (occurrence: US)
  Receive Date: 20250422
  Receipt Date: 20250422
  Transmission Date: 20250717
  Serious: Yes (Life-Threatening, Hospitalization, Other)
  Sender: EPIC PHARM
  Company Number: US-EPICPHARMA-US-2025EPCLIT00462

PATIENT
  Age: 48 Year
  Sex: Female

DRUGS (1)
  1. FLECAINIDE ACETATE [Suspect]
     Active Substance: FLECAINIDE ACETATE
     Indication: Product used for unknown indication
     Route: 065

REACTIONS (4)
  - Nodal arrhythmia [Recovered/Resolved]
  - Toxicity to various agents [Recovered/Resolved]
  - Ventricular tachycardia [Recovered/Resolved]
  - Overdose [Unknown]
